FAERS Safety Report 9063411 (Version 2)
Quarter: 2013Q1

REPORT INFORMATION
  Report Type: Report from Study
  Country: CL (occurrence: CL)
  Receive Date: 20130213
  Receipt Date: 20130213
  Transmission Date: 20140127
  Serious: Yes (Hospitalization)
  Sender: FDA-Public Use
  Company Number: PHHY2012CL072852

PATIENT
  Age: 42 Year
  Sex: Male

DRUGS (6)
  1. LEPONEX [Suspect]
     Indication: SCHIZOPHRENIA
     Dosage: 150 MG, DAILY
     Route: 048
     Dates: start: 20081210
  2. LEPONEX [Suspect]
     Dosage: 50 MG, UNK
     Route: 048
  3. LEPONEX [Suspect]
     Dosage: 300 MG, UNK
     Route: 048
  4. OMEPRAZOLE [Concomitant]
     Indication: ULCER
     Dosage: 20 MG, UNK
  5. CARBORON [Concomitant]
     Dosage: 300 MG, BID
  6. SENTIDOL [Concomitant]
     Dosage: 75 MG, QD

REACTIONS (5)
  - Malaise [Unknown]
  - Psychiatric decompensation [Recovering/Resolving]
  - Nervousness [Recovering/Resolving]
  - Mood altered [Recovering/Resolving]
  - Withdrawal syndrome [Recovering/Resolving]
